FAERS Safety Report 8502424-X (Version None)
Quarter: 2012Q3

REPORT INFORMATION
  Report Type: 
  Country: None (occurrence: None)
  Receive Date: 20120711
  Receipt Date: 20120705
  Transmission Date: 20120928
  Serious: Yes (Other)
  Sender: FDA-Public Use
  Company Number: PHHY2012BR058363

PATIENT
  Sex: Male

DRUGS (1)
  1. DIOVAN [Suspect]

REACTIONS (6)
  - DYSPNOEA [None]
  - HYPERTENSION [None]
  - VISUAL IMPAIRMENT [None]
  - EMPHYSEMA [None]
  - NERVOUSNESS [None]
  - MALAISE [None]
